FAERS Safety Report 17809365 (Version 1)
Quarter: 2020Q2

REPORT INFORMATION
  Report Type: Spontaneous
  Country: FR (occurrence: FR)
  Receive Date: 20200520
  Receipt Date: 20200520
  Transmission Date: 20200714
  Serious: Yes (Life-Threatening, Hospitalization)
  Sender: FDA-Public Use
  Company Number: FR-PFIZER INC-2020200466

PATIENT
  Age: 69 Year
  Sex: Male
  Weight: 100 kg

DRUGS (2)
  1. SINTROM [Suspect]
     Active Substance: ACENOCOUMAROL
     Indication: ATRIAL FIBRILLATION
     Dosage: 4 MG, 1X/DAY
     Route: 048
     Dates: end: 20200215
  2. CELEBREX [Suspect]
     Active Substance: CELECOXIB
     Indication: SPINAL OSTEOARTHRITIS
     Dosage: 1 DF, AS NEEDED
     Route: 048
     Dates: end: 20200215

REACTIONS (3)
  - International normalised ratio increased [Recovered/Resolved]
  - Shock haemorrhagic [Recovered/Resolved]
  - Ulcer [Recovered/Resolved]

NARRATIVE: CASE EVENT DATE: 20200215
